FAERS Safety Report 13962348 (Version 2)
Quarter: 2017Q4

REPORT INFORMATION
  Report Type: Report from Study
  Country: US (occurrence: US)
  Receive Date: 20170912
  Receipt Date: 20171016
  Transmission Date: 20180320
  Serious: Yes (Hospitalization)
  Sender: FDA-Public Use
  Company Number: US-JNJFOC-20170902522

PATIENT
  Age: 35 Year
  Sex: Male
  Weight: 65 kg

DRUGS (5)
  1. APAP [Suspect]
     Active Substance: ACETAMINOPHEN
     Indication: PAIN
     Dosage: INGESTED ABOUT 20 TABLETS
     Route: 048
     Dates: start: 2017
  2. PERCOCET [Suspect]
     Active Substance: ACETAMINOPHEN\OXYCODONE HYDROCHLORIDE
     Indication: PRODUCT USED FOR UNKNOWN INDICATION
     Route: 048
  3. MS CONTIN [Concomitant]
     Active Substance: MORPHINE SULFATE
     Indication: PRODUCT USED FOR UNKNOWN INDICATION
     Route: 065
  4. HEROIN [Suspect]
     Active Substance: DIAMORPHINE
     Indication: PRODUCT USED FOR UNKNOWN INDICATION
     Route: 048
  5. INSULIN [Concomitant]
     Active Substance: INSULIN NOS
     Indication: PRODUCT USED FOR UNKNOWN INDICATION
     Route: 065

REACTIONS (5)
  - Prothrombin time prolonged [Recovered/Resolved]
  - Blood bilirubin increased [Recovered/Resolved]
  - Intentional overdose [Recovered/Resolved]
  - Transaminases increased [Recovered/Resolved]
  - Drug administration error [Recovered/Resolved]

NARRATIVE: CASE EVENT DATE: 2017
